FAERS Safety Report 9426445 (Version 1)
Quarter: 2013Q3

REPORT INFORMATION
  Report Type: Spontaneous
  Country: US (occurrence: None)
  Receive Date: 20130729
  Receipt Date: 20130729
  Transmission Date: 20140515
  Serious: Yes (Other)
  Sender: FDA-Public Use
  Company Number: None

PATIENT
  Age: 40 Year
  Sex: Male
  Weight: 83.92 kg

DRUGS (2)
  1. ZONEGRAN [Suspect]
     Indication: BRAIN INJURY
     Dosage: 200MG EVERY NIGHT PO
     Route: 048
  2. ZONEGRAN [Suspect]
     Indication: CONVULSION
     Dosage: 200MG EVERY NIGHT PO
     Route: 048

REACTIONS (7)
  - Insomnia [None]
  - Weight decreased [None]
  - Disturbance in attention [None]
  - Pharyngeal oedema [None]
  - Headache [None]
  - Eating disorder [None]
  - Vision blurred [None]
